FAERS Safety Report 19975506 (Version 2)
Quarter: 2021Q4

REPORT INFORMATION
  Report Type: Spontaneous
  Country: CN (occurrence: CN)
  Receive Date: 20211021
  Receipt Date: 20211122
  Transmission Date: 20220303
  Serious: Yes (Other)
  Sender: FDA-Public Use
  Company Number: CN-009507513-2110CHN001508

PATIENT
  Age: 47 Year
  Sex: Female

DRUGS (4)
  1. TEMOZOLOMIDE [Suspect]
     Active Substance: TEMOZOLOMIDE
     Indication: Lung adenocarcinoma stage IV
     Dosage: UNK
     Route: 048
  2. TEMOZOLOMIDE [Suspect]
     Active Substance: TEMOZOLOMIDE
     Indication: Metastases to meninges
  3. OSIMERTINIB [Suspect]
     Active Substance: OSIMERTINIB
     Indication: Lung adenocarcinoma stage IV
     Dosage: UNK
  4. OSIMERTINIB [Suspect]
     Active Substance: OSIMERTINIB
     Indication: Metastases to meninges

REACTIONS (2)
  - Drug-induced liver injury [Recovered/Resolved]
  - Product use in unapproved indication [Unknown]
